FAERS Safety Report 6086269-9 (Version None)
Quarter: 2009Q1

REPORT INFORMATION
  Report Type: 
  Country: None (occurrence: None)
  Receive Date: 20090220
  Receipt Date: 20090218
  Transmission Date: 20090719
  Serious: Yes (Death)
  Sender: FDA-Public Use
  Company Number: US-B.I. PHARMACEUTICALS,INC./RIDGEFIELD-2009-BP-00749BP

PATIENT
  Sex: Female

DRUGS (7)
  1. SPIRIVA [Suspect]
     Indication: CHRONIC OBSTRUCTIVE PULMONARY DISEASE
     Dosage: 18MCG
     Route: 055
     Dates: end: 20081228
  2. PROAIR HFA [Concomitant]
  3. FUROSEMIDE [Concomitant]
  4. PREDNISONE TAB [Concomitant]
  5. AMBIEN [Concomitant]
     Indication: INSOMNIA
  6. ALPRAZOLAM [Concomitant]
  7. ADVAIR HFA [Concomitant]

REACTIONS (4)
  - ARRHYTHMIA [None]
  - CERVIX CARCINOMA [None]
  - THYROID DISORDER [None]
  - WRIST FRACTURE [None]
